FAERS Safety Report 12758508 (Version 1)
Quarter: 2016Q3

REPORT INFORMATION
  Report Type: Report from Study
  Country: US (occurrence: US)
  Receive Date: 20160919
  Receipt Date: 20160919
  Transmission Date: 20161109
  Serious: Yes (Hospitalization)
  Sender: FDA-Public Use
  Company Number: US-ABBVIE-16K-163-1724634-00

PATIENT
  Sex: Female

DRUGS (2)
  1. HUMIRA [Suspect]
     Active Substance: ADALIMUMAB
     Route: 058
     Dates: start: 20160905
  2. HUMIRA [Suspect]
     Active Substance: ADALIMUMAB
     Indication: RHEUMATOID ARTHRITIS
     Route: 058
     Dates: start: 20160812, end: 20160812

REACTIONS (6)
  - Anxiety [Unknown]
  - Arthralgia [Unknown]
  - Myositis [Unknown]
  - Post-traumatic stress disorder [Unknown]
  - General physical health deterioration [Unknown]
  - Back pain [Unknown]

NARRATIVE: CASE EVENT DATE: 2016
